FAERS Safety Report 12969325 (Version 1)
Quarter: 2016Q4

REPORT INFORMATION
  Report Type: Report from Study
  Country: ES (occurrence: ES)
  Receive Date: 20161123
  Receipt Date: 20161123
  Transmission Date: 20170207
  Serious: Yes (Death, Hospitalization, Other)
  Sender: FDA-Public Use
  Company Number: ES-ASTELLAS-2016US046185

PATIENT
  Age: 23 Year
  Sex: Female

DRUGS (1)
  1. AMPHOTERICIN B, LIPOSOME [Suspect]
     Active Substance: AMPHOTERICIN B
     Indication: PNEUMONIA NECROTISING
     Dosage: UNK, UNKNOWN FREQ.
     Route: 065

REACTIONS (1)
  - Multiple organ dysfunction syndrome [Fatal]
